FAERS Safety Report 15984893 (Version 1)
Quarter: 2019Q1

REPORT INFORMATION
  Report Type: Spontaneous
  Country: US (occurrence: US)
  Receive Date: 20190219
  Receipt Date: 20190219
  Transmission Date: 20190418
  Serious: Yes (Death)
  Sender: FDA-Public Use
  Company Number: None

PATIENT
  Age: 72 Year
  Sex: Female

DRUGS (18)
  1. IPRATROPIUM [Concomitant]
     Active Substance: IPRATROPIUM
  2. CLOTRIM/BETA CRE DIPROP [Concomitant]
  3. CEFADROXIL. [Concomitant]
     Active Substance: CEFADROXIL
  4. CALCIPOTRIEN [Concomitant]
  5. ATROVASTATIN [Concomitant]
     Active Substance: ATORVASTATIN CALCIUM
  6. SINGULAIR [Concomitant]
     Active Substance: MONTELUKAST SODIUM
  7. HYDROCHLOROT [Concomitant]
     Active Substance: HYDROCHLOROTHIAZIDE
  8. FLUTICASONE. [Concomitant]
     Active Substance: FLUTICASONE
  9. VICTOZA [Concomitant]
     Active Substance: LIRAGLUTIDE
  10. METFORMIN [Concomitant]
     Active Substance: METFORMIN HYDROCHLORIDE
  11. LISINOPRIL. [Concomitant]
     Active Substance: LISINOPRIL
  12. GLIPIZIDE. [Concomitant]
     Active Substance: GLIPIZIDE
  13. VENTOLIN HFA AER [Concomitant]
  14. CLOPIDOGREL [Concomitant]
     Active Substance: CLOPIDOGREL BISULFATE
  15. PREDNISONE. [Concomitant]
     Active Substance: PREDNISONE
  16. MONTELUKAST [Concomitant]
     Active Substance: MONTELUKAST SODIUM
  17. COSENTYX [Suspect]
     Active Substance: SECUKINUMAB
     Indication: PSORIASIS
     Dosage: ?          OTHER FREQUENCY:Q4WKS;?
     Route: 058
     Dates: start: 20170829, end: 20190129
  18. SPIRIVA [Concomitant]
     Active Substance: TIOTROPIUM BROMIDE MONOHYDRATE

REACTIONS (1)
  - Death [None]
